FAERS Safety Report 25832892 (Version 1)
Quarter: 2025Q3

REPORT INFORMATION
  Report Type: Spontaneous
  Country: US (occurrence: US)
  Receive Date: 20250922
  Receipt Date: 20250922
  Transmission Date: 20251021
  Serious: Yes (Death)
  Sender: AMGEN
  Company Number: US-AMGEN-USASP2025186142

PATIENT
  Age: 80 Year
  Sex: Female

DRUGS (1)
  1. PREDNISONE [Suspect]
     Active Substance: PREDNISONE
     Indication: Rash
     Route: 065

REACTIONS (3)
  - Neoplasm malignant [Fatal]
  - Drug effective for unapproved indication [Unknown]
  - Off label use [Unknown]
